FAERS Safety Report 10682444 (Version 1)
Quarter: 2014Q4

REPORT INFORMATION
  Report Type: Spontaneous
  Country: IT (occurrence: None)
  Receive Date: 20141224
  Receipt Date: 20141224
  Transmission Date: 20150529
  Serious: Yes (Other)
  Sender: FDA-Public Use
  Company Number: 2672904

PATIENT
  Age: 35 Year

DRUGS (2)
  1. (CLOFARABINE) [Suspect]
     Active Substance: CLOFARABINE
     Indication: ACUTE MYELOID LEUKAEMIA
     Dosage: 30 MG/MQ, DAYS 1-5, UNKNOWN, UNKNOWN
  2. CYTARABINE. [Suspect]
     Active Substance: CYTARABINE
     Indication: ACUTE MYELOID LEUKAEMIA
     Dosage: 1000 MG/MQ GG, DAYS 1-5, UNKNOWN, UNKNOWN

REACTIONS (1)
  - Febrile neutropenia [None]
